FAERS Safety Report 8221304 (Version 3)
Quarter: 2012Q4

REPORT INFORMATION
  Report Type: 
  Country: FR (occurrence: FR)
  Receive Date: 20111102
  Receipt Date: 20121008
  Transmission Date: 20130627
  Serious: Yes (Hospitalization)
  Sender: FDA-Public Use
  Company Number: PHHY2011FR95425

PATIENT
  Age: 45 Year
  Sex: Female

DRUGS (2)
  1. VOLTARENE [Suspect]
     Indication: BACK PAIN
     Dosage: 2 DF, daily for 8 days
     Dates: start: 20111009
  2. MOPRAL [Suspect]
     Indication: ABDOMINAL PAIN
     Dates: start: 201110

REACTIONS (20)
  - Fatigue [Recovering/Resolving]
  - Pyrexia [Recovering/Resolving]
  - Gamma-glutamyltransferase increased [Recovering/Resolving]
  - Transaminases increased [Recovering/Resolving]
  - Blood alkaline phosphatase increased [Recovering/Resolving]
  - Blood bilirubin increased [Recovering/Resolving]
  - White blood cell count increased [Recovering/Resolving]
  - Eosinophil count increased [Recovered/Resolved]
  - Antinuclear antibody increased [Recovering/Resolving]
  - Chills [Recovering/Resolving]
  - Myalgia [Recovering/Resolving]
  - Asthenia [Recovering/Resolving]
  - Toxocariasis [Recovering/Resolving]
  - Drug reaction with eosinophilia and systemic symptoms [Recovering/Resolving]
  - Hepatitis acute [Not Recovered/Not Resolved]
  - Abdominal pain upper [Recovering/Resolving]
  - Jaundice [Recovering/Resolving]
  - Skin lesion [Recovering/Resolving]
  - Pruritus [Recovering/Resolving]
  - Rash maculo-papular [Recovering/Resolving]
